FAERS Safety Report 6972782-6 (Version None)
Quarter: 2010Q3

REPORT INFORMATION
  Report Type: 
  Country: None (occurrence: None)
  Receive Date: 20100909
  Receipt Date: 20100829
  Transmission Date: 20110219
  Serious: Yes (Other)
  Sender: FDA-Public Use
  Company Number: US-PFIZER INC-2010108461

PATIENT
  Sex: Female

DRUGS (1)
  1. LYRICA [Suspect]
     Dosage: UNK
     Route: 048
     Dates: start: 20100827

REACTIONS (5)
  - DISORIENTATION [None]
  - GAIT DISTURBANCE [None]
  - INSOMNIA [None]
  - LIP SWELLING [None]
  - VERTIGO [None]
